FAERS Safety Report 11746527 (Version 1)
Quarter: 2015Q4

REPORT INFORMATION
  Report Type: Other
  Country: IN (occurrence: IN)
  Receive Date: 20151117
  Receipt Date: 20151117
  Transmission Date: 20160304
  Serious: Yes (Other)
  Sender: FDA-Public Use
  Company Number: IN-COR_00423_2015

PATIENT
  Age: 7 Year
  Sex: Male

DRUGS (3)
  1. ETOPOSIDE. [Suspect]
     Active Substance: ETOPOSIDE
     Indication: RETINOBLASTOMA
     Dosage: 6 CYCLES
  2. CARBOPLATIN. [Suspect]
     Active Substance: CARBOPLATIN
     Indication: RETINOBLASTOMA
     Dosage: 6 CYCLES
  3. VINCRISTINE [Suspect]
     Active Substance: VINCRISTINE
     Indication: RETINOBLASTOMA
     Dosage: 6 CYCLES

REACTIONS (1)
  - Deafness neurosensory [Unknown]
